FAERS Safety Report 8543316-X (Version None)
Quarter: 2012Q2

REPORT INFORMATION
  Report Type: 
  Country: None (occurrence: None)
  Receive Date: 20120412
  Receipt Date: 20090707
  Transmission Date: 20120825
  Serious: Yes (Hospitalization, Other)
  Sender: FDA-Public Use
  Company Number: PHEH2006US06792

PATIENT
  Age: 74 Year
  Sex: Female
  Weight: 65.5 kg

DRUGS (12)
  1. DARVOCET-N (DEXTROPROPOXYPHENE NAPSILATE, PARACETAMOL) [Concomitant]
  2. VIOXX [Concomitant]
  3. ARIMIDEX [Concomitant]
  4. CALCIUM CARBONATE [Concomitant]
  5. GLUCOSAMINE W/CHONDROITIN (CHONDROITIN SULFATE, GLUCOSAMINE) [Concomitant]
  6. ZOMETA [Suspect]
     Indication: METASTASES TO BONE
     Dosage: 4MG, QMONTH, INFUSION
     Dates: start: 20020319, end: 20031201
  7. ATIVAN [Concomitant]
  8. AREDIA [Suspect]
     Indication: METASTASES TO BONE
     Dosage: 90MG QMON IN 500CC OVER 1.5 TO 2 HOURS
     Dates: start: 20001003, end: 20020219
  9. REGLAN [Concomitant]
  10. TAMOXIFEN CITRATE [Concomitant]
  11. FOSAMAX [Concomitant]
  12. NEXIUM [Concomitant]

REACTIONS (49)
  - OSTEONECROSIS [None]
  - PURULENT DISCHARGE [None]
  - DENTAL OPERATION [None]
  - OSTEOMYELITIS [None]
  - BONE DISORDER [None]
  - ACTINOMYCOSIS [None]
  - HYPERPLASIA [None]
  - DYSGEUSIA [None]
  - URTICARIA [None]
  - MYOFASCIAL PAIN SYNDROME [None]
  - DENTAL CARIES [None]
  - ABSCESS JAW [None]
  - TOOTH DISORDER [None]
  - JAW OPERATION [None]
  - PROCEDURAL PAIN [None]
  - ORAL CAVITY FISTULA [None]
  - GINGIVAL SWELLING [None]
  - PAIN IN JAW [None]
  - BIOPSY [None]
  - BACK PAIN [None]
  - ANXIETY [None]
  - DERMATITIS [None]
  - PAIN IN EXTREMITY [None]
  - IMPAIRED HEALING [None]
  - ANHEDONIA [None]
  - TOOTH FRACTURE [None]
  - TOOTH DEPOSIT [None]
  - PAPILLOMA [None]
  - WEIGHT DECREASED [None]
  - HYPOAESTHESIA [None]
  - PAIN [None]
  - PLASTIC SURGERY TO THE FACE [None]
  - ORAL SURGERY [None]
  - BONE PAIN [None]
  - OSTEOARTHRITIS [None]
  - EMOTIONAL DISTRESS [None]
  - PRIMARY SEQUESTRUM [None]
  - INFLAMMATION [None]
  - WOUND DRAINAGE [None]
  - ORAL DISCOMFORT [None]
  - HYPERBARIC OXYGEN THERAPY [None]
  - RASH [None]
  - DEFORMITY [None]
  - TOOTH EXTRACTION [None]
  - TOOTHACHE [None]
  - DEBRIDEMENT [None]
  - TOOTH LOSS [None]
  - TOOTH INFECTION [None]
  - FACE OEDEMA [None]
